FAERS Safety Report 16914117 (Version 5)
Quarter: 2020Q4

REPORT INFORMATION
  Report Type: Spontaneous
  Country: US (occurrence: US)
  Receive Date: 20191014
  Receipt Date: 20201104
  Transmission Date: 20210113
  Serious: No
  Sender: FDA-Public Use
  Company Number: US-PFIZER INC-2019419886

PATIENT
  Age: 58 Year
  Sex: Male
  Weight: 134.24 kg

DRUGS (3)
  1. LYRICA [Suspect]
     Active Substance: PREGABALIN
     Indication: DIABETIC NEUROPATHY
     Dosage: 200 MG, ONCE A DAY
  2. LYRICA [Suspect]
     Active Substance: PREGABALIN
     Dosage: 20 MG, THREE TIMES A DAY
     Dates: start: 2005
  3. LYRICA [Suspect]
     Active Substance: PREGABALIN
     Indication: NERVE INJURY
     Dosage: 200 MG, THREE TIMES A DAY
     Route: 048

REACTIONS (1)
  - Withdrawal syndrome [Recovered/Resolved]
